FAERS Safety Report 17890002 (Version 1)
Quarter: 2020Q2

REPORT INFORMATION
  Report Type: Spontaneous
  Country: US (occurrence: US)
  Receive Date: 20200612
  Receipt Date: 20200612
  Transmission Date: 20200714
  Serious: No
  Sender: FDA-Public Use
  Company Number: US-LUPIN PHARMACEUTICALS INC.-2019-08909

PATIENT
  Sex: Female

DRUGS (2)
  1. TEMAZEPAM CAPSULES, USP, 15 MG [Suspect]
     Active Substance: TEMAZEPAM
     Indication: INSOMNIA
     Dosage: UNK, BID (TWICE IN NIGHT)
     Route: 048
  2. LITHIUM. [Concomitant]
     Active Substance: LITHIUM
     Indication: SLEEP DISORDER
     Dosage: UNK, QD (ONCE IN THE MORNING)
     Route: 065

REACTIONS (2)
  - Hangover [Not Recovered/Not Resolved]
  - Drug ineffective [Unknown]
